FAERS Safety Report 19555959 (Version 4)
Quarter: 2021Q3

REPORT INFORMATION
  Report Type: Spontaneous
  Country: PL (occurrence: PL)
  Receive Date: 20210715
  Receipt Date: 20210820
  Transmission Date: 20211014
  Serious: Yes (Hospitalization)
  Sender: FDA-Public Use
  Company Number: PL-CELGENEUS-POL-20210702317

PATIENT
  Age: 78 Year
  Sex: Female
  Weight: 64 kg

DRUGS (14)
  1. DANAZOL. [Concomitant]
     Active Substance: DANAZOL
     Indication: BLOOD FOLLICLE STIMULATING HORMONE ABNORMAL
     Route: 048
  2. BIBLOC [Concomitant]
     Active Substance: BISOPROLOL
     Indication: MYOCARDIAL ISCHAEMIA
     Route: 048
     Dates: start: 2000
  3. EXACYL [Concomitant]
     Active Substance: TRANEXAMIC ACID
     Indication: HAEMORRHAGIC DISORDER
     Route: 048
  4. CYCLONAMINE [Concomitant]
     Active Substance: ETHAMSYLATE
     Indication: HAEMORRHAGIC DISORDER
     Dosage: 1500 MILLIGRAM
     Route: 048
     Dates: start: 2021
  5. VENETOCLAX. [Suspect]
     Active Substance: VENETOCLAX
     Indication: MYELODYSPLASTIC SYNDROME
     Route: 048
  6. POLPRAZOL [Concomitant]
     Active Substance: OMEPRAZOLE
     Indication: GASTROOESOPHAGEAL REFLUX DISEASE
     Dosage: 20 MILLIGRAM
     Route: 048
     Dates: start: 2021
  7. ISOPHANE INSULIN [Concomitant]
     Active Substance: INSULIN NOS
     Indication: DIABETES MELLITUS
     Route: 058
     Dates: start: 2021
  8. NOVORAPID [Concomitant]
     Active Substance: INSULIN ASPART
     Indication: DIABETES MELLITUS
     Route: 058
     Dates: start: 2021
  9. LEVOTHYROXINUM NATRICUM [Concomitant]
     Indication: HYPOTHYROIDISM
     Route: 048
  10. ZOCOR [Concomitant]
     Active Substance: SIMVASTATIN
     Indication: PROPHYLAXIS
     Dosage: 20 MILLIGRAM
     Route: 048
     Dates: start: 2002
  11. ENCORTON [Concomitant]
     Active Substance: PREDNISONE
     Indication: PALLIATIVE CARE
     Dosage: 5 MILLIGRAM
     Route: 048
  12. AZACITIDINE. [Suspect]
     Active Substance: AZACITIDINE
     Indication: MYELODYSPLASTIC SYNDROME
     Dosage: 75 MILLIGRAM/SQ. METER
     Route: 058
     Dates: start: 20210517
  13. VITAMIN D3 [Concomitant]
     Active Substance: CHOLECALCIFEROL
     Indication: PROPHYLAXIS
     Route: 048
  14. CALPEROS [Concomitant]
     Indication: OSTEOPOROSIS PROPHYLAXIS
     Dosage: 500
     Route: 048

REACTIONS (1)
  - Pyrexia [Not Recovered/Not Resolved]

NARRATIVE: CASE EVENT DATE: 20210701
